FAERS Safety Report 7659303-X (Version None)
Quarter: 2011Q3

REPORT INFORMATION
  Report Type: 
  Country: None (occurrence: None)
  Receive Date: 20110805
  Receipt Date: 20110726
  Transmission Date: 20111222
  Serious: Yes (Hospitalization)
  Sender: FDA-Public Use
  Company Number: GB-NAPPMUNDI-GBR-2011-0008585

PATIENT
  Age: 72 Year
  Sex: Male

DRUGS (18)
  1. RANITIDINE [Concomitant]
  2. OXYCODONE HCL [Suspect]
     Indication: CHEST PAIN
     Dosage: 10 MG, PRN
     Route: 048
     Dates: start: 20110707, end: 20110707
  3. FONDAPARINUX SODIUM [Concomitant]
  4. ALFUZOSIN HYDROCHLORIDE [Concomitant]
  5. NITROGLYCERIN [Concomitant]
  6. SERTRALINE HYDROCHLORIDE [Concomitant]
  7. AMIODARONE HYDROCHLORIDE [Concomitant]
  8. ACETAMINOPHEN [Concomitant]
  9. PRAVASTATIN SODIUM [Concomitant]
  10. ZOPICLONE [Concomitant]
  11. DIGOXIN [Concomitant]
  12. HYDROXYZINE HYDROCHLORIDE [Concomitant]
  13. RAMIPRIL [Concomitant]
  14. OXYCONTIN [Suspect]
     Indication: CHEST PAIN
     Dosage: 10 MG, BID
     Route: 048
     Dates: start: 20110629, end: 20110707
  15. ASPIRIN [Concomitant]
  16. DIAZEPAM [Concomitant]
  17. GABAPENTIN [Concomitant]
  18. NICORANDIL [Concomitant]

REACTIONS (3)
  - HALLUCINATION [None]
  - CONFUSIONAL STATE [None]
  - AGGRESSION [None]
